FAERS Safety Report 10922567 (Version 1)
Quarter: 2015Q1

REPORT INFORMATION
  Report Type: Report from Study
  Country: US (occurrence: US)
  Receive Date: 20150317
  Receipt Date: 20150317
  Transmission Date: 20150721
  Serious: Yes (Hospitalization)
  Sender: FDA-Public Use
  Company Number: US-BAYER-2015-010178

PATIENT
  Age: 61 Year
  Sex: Female

DRUGS (1)
  1. STIVARGA [Suspect]
     Active Substance: REGORAFENIB
     Indication: COLORECTAL CANCER
     Dosage: 120 MG, DAILY
     Route: 048
     Dates: start: 20150114, end: 20150306

REACTIONS (8)
  - Dry skin [None]
  - Pneumonia [None]
  - Nausea [None]
  - Vomiting [None]
  - Vomiting [None]
  - Nausea [None]
  - Abdominal pain [None]
  - Decreased appetite [Not Recovered/Not Resolved]

NARRATIVE: CASE EVENT DATE: 20150119
